FAERS Safety Report 5311288-7 (Version None)
Quarter: 2007Q2

REPORT INFORMATION
  Report Type: 
  Country: None (occurrence: None)
  Receive Date: 20070430
  Receipt Date: 20070420
  Transmission Date: 20071010
  Serious: Yes (Other)
  Sender: FDA-Public Use
  Company Number: US-JNJFOC-20070405005

PATIENT
  Sex: Male
  Weight: 89.36 kg

DRUGS (28)
  1. INFLIXIMAB [Suspect]
     Dosage: 6INFUSIONS PRIOR TO BL
     Route: 042
  2. INFLIXIMAB [Suspect]
     Dosage: 6INFUSIONS PRIOR TO BL
     Route: 042
  3. INFLIXIMAB [Suspect]
     Dosage: 6INFUSIONS PRIOR TO BL
     Route: 042
  4. INFLIXIMAB [Suspect]
     Dosage: 6INFUSIONS PRIOR TO BL
     Route: 042
  5. INFLIXIMAB [Suspect]
     Dosage: 6INFUSIONS PRIOR TO BL
     Route: 042
  6. INFLIXIMAB [Suspect]
     Dosage: 6INFUSIONS PRIOR TO BL
     Route: 042
  7. INFLIXIMAB [Suspect]
     Dosage: 6INFUSIONS PRIOR TO BL
     Route: 042
  8. INFLIXIMAB [Suspect]
     Dosage: 6INFUSIONS PRIOR TO BL
     Route: 042
  9. INFLIXIMAB [Suspect]
     Dosage: 6INFUSIONS PRIOR TO BL
     Route: 042
  10. INFLIXIMAB [Suspect]
     Dosage: 6INFUSIONS PRIOR TO BL
     Route: 042
  11. INFLIXIMAB [Suspect]
     Dosage: 6INFUSIONS PRIOR TO BL
     Route: 042
  12. INFLIXIMAB [Suspect]
     Dosage: 6INFUSIONS PRIOR TO BL
     Route: 042
  13. INFLIXIMAB [Suspect]
     Dosage: 6INFUSIONS PRIOR TO BL
     Route: 042
  14. INFLIXIMAB [Suspect]
     Dosage: 6INFUSIONS PRIOR TO BL
     Route: 042
  15. INFLIXIMAB [Suspect]
     Dosage: 6INFUSIONS PRIOR TO BL
     Route: 042
  16. INFLIXIMAB [Suspect]
     Dosage: 6INFUSIONS PRIOR TO BL
     Route: 042
  17. INFLIXIMAB [Suspect]
     Dosage: 6INFUSIONS PRIOR TO BL
     Route: 042
  18. INFLIXIMAB [Suspect]
     Dosage: 6INFUSIONS PRIOR TO BL
     Route: 042
  19. INFLIXIMAB [Suspect]
     Dosage: 6INFUSIONS PRIOR TO BL
     Route: 042
  20. INFLIXIMAB [Suspect]
     Dosage: 6INFUSIONS PRIOR TO BL
     Route: 042
  21. INFLIXIMAB [Suspect]
     Dosage: 6INFUSIONS PRIOR TO BL
     Route: 042
  22. INFLIXIMAB [Suspect]
     Dosage: 6INFUSIONS PRIOR TO BL
     Route: 042
  23. INFLIXIMAB [Suspect]
     Dosage: 6INFUSIONS PRIOR TO BL
     Route: 042
  24. INFLIXIMAB [Suspect]
     Dosage: 6INFUSIONS PRIOR TO BL
     Route: 042
  25. INFLIXIMAB [Suspect]
     Dosage: 6INFUSIONS PRIOR TO BL
     Route: 042
  26. INFLIXIMAB [Suspect]
     Indication: CROHN'S DISEASE
     Dosage: 6 INFUSIONS PRIOR TO BASELINE
     Route: 042
  27. OTHER CORTICOSTEROIDS [Suspect]
     Indication: CROHN'S DISEASE
  28. VITAMIN B-12 [Suspect]
     Indication: CROHN'S DISEASE

REACTIONS (1)
  - DERMAL CYST [None]
